FAERS Safety Report 8063764-4 (Version None)
Quarter: 2011Q4

REPORT INFORMATION
  Report Type: 
  Country: None (occurrence: None)
  Receive Date: 20111221
  Receipt Date: 20110624
  Transmission Date: 20120403
  Serious: Yes (Other)
  Sender: FDA-Public Use
  Company Number: PHHY2011US54072

PATIENT
  Age: 4 Year
  Sex: Male
  Weight: 18.2 kg

DRUGS (7)
  1. MIRALAX (MAGROGOL) [Concomitant]
  2. ACETAMINOPHEN [Concomitant]
  3. FOLIC ACID [Concomitant]
  4. EXJADE [Suspect]
     Indication: IRON OVERLOAD
     Dosage: 375 MG, QD, ORAL, 250 MG, QD, ORAL
     Route: 048
     Dates: start: 20110501, end: 20110601
  5. EXJADE [Suspect]
     Indication: IRON OVERLOAD
     Dosage: 375 MG, QD, ORAL, 250 MG, QD, ORAL
     Route: 048
     Dates: start: 20110101, end: 20110401
  6. PENICILLIN [Concomitant]
  7. NSAID'S (NO INGREDIENTS/SUBSTANCES) [Concomitant]

REACTIONS (3)
  - ASPARTATE AMINOTRANSFERASE INCREASED [None]
  - TRANSAMINASES INCREASED [None]
  - ALANINE AMINOTRANSFERASE INCREASED [None]
